FAERS Safety Report 9298393 (Version 1)
Quarter: 2013Q2

REPORT INFORMATION
  Report Type: Spontaneous
  Country: US (occurrence: US)
  Receive Date: 20130520
  Receipt Date: 20130520
  Transmission Date: 20140414
  Serious: Yes (Other)
  Sender: FDA-Public Use
  Company Number: US-PFIZER INC-2013154336

PATIENT
  Age: 56 Year
  Sex: Female
  Weight: 181 kg

DRUGS (5)
  1. GABAPENTIN [Suspect]
     Indication: DIABETIC NEUROPATHY
     Dosage: 300 MG, 3X/DAY
     Dates: start: 201112
  2. GABAPENTIN [Suspect]
     Dosage: 300 MG, 4X/DAY
     Dates: end: 20130514
  3. CYMBALTA [Suspect]
     Dosage: UNK
  4. METFORMIN [Concomitant]
     Indication: DIABETES MELLITUS
     Dosage: UNK
  5. GLIPIZIDE [Concomitant]
     Indication: DIABETES MELLITUS
     Dosage: UNK

REACTIONS (6)
  - Bedridden [Unknown]
  - Movement disorder [Unknown]
  - Eating disorder [Unknown]
  - Sleep disorder [Unknown]
  - Malaise [Unknown]
  - Drug ineffective [Unknown]
